FAERS Safety Report 19788314 (Version 2)
Quarter: 2021Q4

REPORT INFORMATION
  Report Type: Report from Study
  Country: US (occurrence: US)
  Receive Date: 20210903
  Receipt Date: 20211018
  Transmission Date: 20220303
  Serious: Yes (Hospitalization)
  Sender: FDA-Public Use
  Company Number: US-GILEAD-2021-0547002

PATIENT
  Age: 19 Year
  Sex: Female

DRUGS (1)
  1. AMBRISENTAN [Suspect]
     Active Substance: AMBRISENTAN
     Indication: Pulmonary hypertension
     Dosage: 10 MG, QD
     Route: 065
     Dates: start: 20190216

REACTIONS (3)
  - Oxygen saturation decreased [Recovering/Resolving]
  - Fluid retention [Recovering/Resolving]
  - Dyspnoea [Not Recovered/Not Resolved]
